FAERS Safety Report 5011598-7 (Version None)
Quarter: 2006Q2

REPORT INFORMATION
  Report Type: 
  Country: None (occurrence: None)
  Receive Date: 20060404
  Receipt Date: 20051102
  Transmission Date: 20061013
  Serious: No
  Sender: FDA-Public Use
  Company Number: USA0511112698

PATIENT
  Age: 44 Year
  Sex: Male

DRUGS (4)
  1. CYMBALTA [Suspect]
     Dosage: 90 MG
     Dates: start: 20040901
  2. LIDODERM [Concomitant]
  3. IBUPROFEN [Concomitant]
  4. GLUCOSAMINE [Concomitant]

REACTIONS (1)
  - TINNITUS [None]
